FAERS Safety Report 4630332-3 (Version None)
Quarter: 2005Q2

REPORT INFORMATION
  Report Type: 
  Country: None (occurrence: None)
  Receive Date: 20050405
  Receipt Date: 20050405
  Transmission Date: 20051028
  Serious: Yes (Life-Threatening, Hospitalization)
  Sender: FDA-Public Use
  Company Number: None

PATIENT
  Sex: Male
  Weight: 37.9 kg

DRUGS (2)
  1. SULINDAC [Suspect]
     Indication: DESMOID TUMOUR
     Dosage: 100MG PO BID
     Route: 048
  2. TEMOXIFEN 100MG PO BID [Suspect]
     Indication: DESMOID TUMOUR
     Dosage: 100MG PO BID
     Route: 048

REACTIONS (9)
  - ACTIVATED PARTIAL THROMBOPLASTIN TIME PROLONGED [None]
  - ALANINE AMINOTRANSFERASE INCREASED [None]
  - ASPARTATE AMINOTRANSFERASE INCREASED [None]
  - BILIRUBIN CONJUGATED INCREASED [None]
  - BLOOD BILIRUBIN INCREASED [None]
  - ENCEPHALOPATHY [None]
  - HEPATIC FAILURE [None]
  - LABORATORY TEST ABNORMAL [None]
  - PROTHROMBIN TIME PROLONGED [None]
